FAERS Safety Report 11291091 (Version 1)
Quarter: 2015Q3

REPORT INFORMATION
  Report Type: Spontaneous
  Country: EG (occurrence: EG)
  Receive Date: 20150722
  Receipt Date: 20150722
  Transmission Date: 20151125
  Serious: Yes (Other)
  Sender: FDA-Public Use
  Company Number: PHHY2015EG086542

PATIENT
  Age: 25 Year
  Sex: Male
  Weight: 75 kg

DRUGS (2)
  1. MIFLONIDE [Suspect]
     Active Substance: BUDESONIDE
     Indication: ASTHMA
     Dosage: 400 UG, BID
     Route: 055
     Dates: start: 20150515, end: 20150718
  2. FORADIL [Suspect]
     Active Substance: FORMOTEROL FUMARATE
     Dosage: 12 UG, BID
     Route: 055
     Dates: start: 20150515, end: 20150718

REACTIONS (1)
  - Lower gastrointestinal haemorrhage [Recovered/Resolved]

NARRATIVE: CASE EVENT DATE: 20150709
